FAERS Safety Report 7950709-8 (Version None)
Quarter: 2011Q4

REPORT INFORMATION
  Report Type: 
  Country: None (occurrence: None)
  Receive Date: 20111201
  Receipt Date: 20111124
  Transmission Date: 20120403
  Serious: Yes (Death, Hospitalization)
  Sender: FDA-Public Use
  Company Number: MX-BRISTOL-MYERS SQUIBB COMPANY-16256125

PATIENT
  Age: 60 Year
  Sex: Male

DRUGS (1)
  1. IRBESARTAN [Suspect]
     Indication: HYPERTENSION
     Dosage: 1DF: 1TAB 24H.
     Route: 048
     Dates: start: 20110101, end: 20111109

REACTIONS (5)
  - MULTI-ORGAN FAILURE [None]
  - SEPTIC SHOCK [None]
  - WOUND DEHISCENCE [None]
  - CARDIOVASCULAR DISORDER [None]
  - POSTOPERATIVE WOUND INFECTION [None]
